FAERS Safety Report 8183012-4 (Version None)
Quarter: 2012Q1

REPORT INFORMATION
  Report Type: 
  Country: None (occurrence: None)
  Receive Date: 20120305
  Receipt Date: 20120103
  Transmission Date: 20120608
  Serious: No
  Sender: FDA-Public Use
  Company Number: US-BRISTOL-MYERS SQUIBB COMPANY-16208480

PATIENT
  Age: 55 Year
  Sex: Male

DRUGS (6)
  1. KOMBIGLYZE XR [Suspect]
     Indication: TYPE 2 DIABETES MELLITUS
     Dosage: 1DF=1000MG 1 TABLET
     Route: 048
     Dates: start: 20110913, end: 20111031
  2. LISINOPRIL [Concomitant]
     Dates: start: 20100701
  3. SIMVASTATIN [Concomitant]
     Dates: start: 20100701
  4. HYDROCHLOROTHIAZIDE [Concomitant]
     Dates: start: 20100701
  5. ASPIRIN [Concomitant]
     Dates: start: 20100701
  6. MULTI-VITAMINS [Concomitant]
     Dates: start: 20100701

REACTIONS (2)
  - GLYCOSYLATED HAEMOGLOBIN INCREASED [None]
  - BLOOD SODIUM DECREASED [None]
